FAERS Safety Report 16076191 (Version 1)
Quarter: 2019Q1

REPORT INFORMATION
  Report Type: Spontaneous
  Country: ES (occurrence: ES)
  Receive Date: 20190315
  Receipt Date: 20190315
  Transmission Date: 20190418
  Serious: Yes (Death, Hospitalization)
  Sender: FDA-Public Use
  Company Number: ES-ACCORD-113304

PATIENT
  Age: 46 Year
  Sex: Female
  Weight: 53 kg

DRUGS (3)
  1. TACROLIMUS. [Interacting]
     Active Substance: TACROLIMUS
     Indication: RENAL TRANSPLANT
     Route: 048
     Dates: start: 201702, end: 20180119
  2. PREDNISONE. [Interacting]
     Active Substance: PREDNISONE
     Indication: RENAL TRANSPLANT
     Route: 048
     Dates: start: 201702, end: 20180210
  3. MYCOPHENOLIC ACID. [Suspect]
     Active Substance: MYCOPHENOLIC ACID
     Indication: RENAL TRANSPLANT
     Route: 048
     Dates: start: 201702, end: 201710

REACTIONS (2)
  - Pneumonia cytomegaloviral [Fatal]
  - Drug interaction [Unknown]

NARRATIVE: CASE EVENT DATE: 20180118
